FAERS Safety Report 12285355 (Version 14)
Quarter: 2022Q3

REPORT INFORMATION
  Report Type: Other
  Country: CA (occurrence: CA)
  Receive Date: 20160420
  Receipt Date: 20220929
  Transmission Date: 20221027
  Serious: Yes (Other)
  Sender: FDA-Public Use
  Company Number: CA-ROCHE-1744210

PATIENT
  Age: 59 Year
  Sex: Female

DRUGS (13)
  1. XOLAIR [Suspect]
     Active Substance: OMALIZUMAB
     Indication: Asthma
     Route: 058
     Dates: start: 20140612
  2. XOLAIR [Suspect]
     Active Substance: OMALIZUMAB
     Route: 058
     Dates: start: 20160413
  3. XOLAIR [Suspect]
     Active Substance: OMALIZUMAB
     Route: 058
     Dates: start: 20180327
  4. XOLAIR [Suspect]
     Active Substance: OMALIZUMAB
     Route: 058
     Dates: start: 20180725
  5. XOLAIR [Suspect]
     Active Substance: OMALIZUMAB
     Route: 065
     Dates: start: 20190219
  6. XOLAIR [Suspect]
     Active Substance: OMALIZUMAB
     Route: 058
     Dates: start: 20150130
  7. XOLAIR [Suspect]
     Active Substance: OMALIZUMAB
     Route: 058
     Dates: start: 20190219
  8. XOLAIR [Suspect]
     Active Substance: OMALIZUMAB
     Route: 058
     Dates: start: 20210624
  9. XOLAIR [Suspect]
     Active Substance: OMALIZUMAB
     Dosage: 375 MG, BIW
     Route: 058
     Dates: start: 20220902
  10. ADVAIR HFA [Concomitant]
     Active Substance: FLUTICASONE PROPIONATE\SALMETEROL XINAFOATE
     Indication: Product used for unknown indication
     Dosage: 250 MG, UNK
     Route: 065
  11. PREDNISONE [Concomitant]
     Active Substance: PREDNISONE
     Indication: Product used for unknown indication
     Dosage: 365 DAYS
     Route: 065
  12. SYMBICORT [Concomitant]
     Active Substance: BUDESONIDE\FORMOTEROL FUMARATE DIHYDRATE
     Indication: Product used for unknown indication
     Dosage: 2 PUFFS
     Route: 065
  13. VENTOLIN [Concomitant]
     Active Substance: ALBUTEROL SULFATE
     Indication: Product used for unknown indication
     Dosage: 4 TO 5 TIMES DAILY
     Route: 065

REACTIONS (25)
  - Blood pressure systolic increased [Unknown]
  - Forced expiratory volume decreased [Not Recovered/Not Resolved]
  - Gout [Unknown]
  - Influenza [Unknown]
  - Ovarian cancer [Unknown]
  - Breast cancer [Unknown]
  - Metastases to lymph nodes [Unknown]
  - Cerebrovascular accident [Unknown]
  - Feeling abnormal [Unknown]
  - Obstructive airways disorder [Unknown]
  - Epistaxis [Unknown]
  - Renal neoplasm [Unknown]
  - Abdominal pain [Unknown]
  - Coccydynia [Unknown]
  - Chest discomfort [Unknown]
  - Dyspnoea [Unknown]
  - Sleep disorder [Unknown]
  - Discomfort [Unknown]
  - Wheezing [Unknown]
  - Disturbance in attention [Unknown]
  - Productive cough [Unknown]
  - Asthma [Unknown]
  - Cough [Unknown]
  - Product dose omission issue [Unknown]
  - Back pain [Unknown]

NARRATIVE: CASE EVENT DATE: 20150401
